FAERS Safety Report 23809761 (Version 1)
Quarter: 2024Q2

REPORT INFORMATION
  Report Type: Spontaneous
  Country: US (occurrence: US)
  Receive Date: 20240502
  Receipt Date: 20240502
  Transmission Date: 20240716
  Serious: No
  Sender: FDA-Public Use
  Company Number: US-UCBSA-2023016919

PATIENT
  Age: 60 Year
  Sex: Male
  Weight: 164.63 kg

DRUGS (1)
  1. CIMZIA [Suspect]
     Active Substance: CERTOLIZUMAB PEGOL
     Indication: Rheumatoid arthritis
     Dosage: 400 MILLIGRAM, EV 4 WEEKS
     Route: 058
     Dates: start: 202301

REACTIONS (4)
  - Constipation [Unknown]
  - Blood iron decreased [Unknown]
  - Colonoscopy [Unknown]
  - Product use issue [Unknown]

NARRATIVE: CASE EVENT DATE: 20230622
